FAERS Safety Report 5974188-5 (Version None)
Quarter: 2008Q4

REPORT INFORMATION
  Report Type: 
  Country: None (occurrence: None)
  Receive Date: 20081125
  Receipt Date: 20081111
  Transmission Date: 20090506
  Serious: Yes (Hospitalization)
  Sender: FDA-Public Use
  Company Number: 2008US003011

PATIENT
  Age: 76 Year
  Sex: Male
  Weight: 52.5 kg

DRUGS (12)
  1. AMBISOME [Suspect]
     Indication: ASPERGILLOSIS
     Dosage: 132 MG UID/QD UNK
     Dates: start: 20081008, end: 20081010
  2. MUCODYNE (CARBOCISTEINE) [Concomitant]
  3. SINGULAIR [Concomitant]
  4. MAGNESIUM OXIDE (MAGNESIUM OXIDE) [Concomitant]
  5. PURSENNID (SENNOSIDE A+B) [Concomitant]
  6. CANDESARTAN CILEXETIL [Concomitant]
  7. PARIET (RABEPRAZOLE SODIUM) [Concomitant]
  8. ASPIRIN [Concomitant]
  9. ZYLORIC (ALLOPURINOL SODIUM) [Concomitant]
  10. PREDNISONE [Concomitant]
  11. MUCOSTA (REBAMIPIDE) [Concomitant]
  12. ALFAROL (ALFACALCIDOL) [Concomitant]

REACTIONS (9)
  - BLOOD CREATININE INCREASED [None]
  - BLOOD UREA INCREASED [None]
  - BLOOD UREA NITROGEN/CREATININE RATIO INCREASED [None]
  - C-REACTIVE PROTEIN INCREASED [None]
  - DECREASED APPETITE [None]
  - DEHYDRATION [None]
  - MALAISE [None]
  - PYREXIA [None]
  - RENAL DISORDER [None]
